FAERS Safety Report 7497719-5 (Version None)
Quarter: 2011Q2

REPORT INFORMATION
  Report Type: 
  Country: None (occurrence: None)
  Receive Date: 20110523
  Receipt Date: 20110519
  Transmission Date: 20111010
  Serious: Yes (Life-Threatening)
  Sender: FDA-Public Use
  Company Number: PHHY2011NO42904

PATIENT
  Age: 8 Year
  Sex: Male

DRUGS (4)
  1. CISPLATIN [Suspect]
     Indication: BONE SARCOMA
     Dosage: 90 MG/M (48-HOUR CONTINUOUS INFUSION)
  2. IFOSFAMIDE [Suspect]
     Indication: BONE SARCOMA
     Dosage: 2 G/M /DAY FOR 5 DAYS
  3. METHOTREXATE [Suspect]
     Indication: BONE SARCOMA
     Dosage: 12 G/M (4-HOUR INFUSION)
  4. DOXORUBICIN HCL [Suspect]
     Indication: BONE SARCOMA
     Dosage: 75 MG/M (4-HOUR CONTINUOUS INFUSION)

REACTIONS (3)
  - ENTEROCOLITIS [None]
  - NEUTROPENIA [None]
  - THROMBOCYTOPENIA [None]
